FAERS Safety Report 4282714-X (Version None)
Quarter: 2004Q1

REPORT INFORMATION
  Report Type: 
  Country: None (occurrence: None)
  Receive Date: 20040130
  Receipt Date: 20030331
  Transmission Date: 20041129
  Serious: No
  Sender: FDA-Public Use
  Company Number: US-BRISTOL-MYERS SQUIBB COMPANY-12227369

PATIENT
  Sex: Female

DRUGS (1)
  1. SERZONE [Suspect]
     Dosage: TOOK PRODUCT IN 1998-1999.
     Route: 048
     Dates: start: 19980101, end: 19990101

REACTIONS (6)
  - ARTHRALGIA [None]
  - CHROMATURIA [None]
  - DYSPNOEA [None]
  - HEART RATE IRREGULAR [None]
  - HEPATIC PAIN [None]
  - RASH [None]
